FAERS Safety Report 6931191-6 (Version None)
Quarter: 2010Q3

REPORT INFORMATION
  Report Type: 
  Country: None (occurrence: None)
  Receive Date: 20100813
  Receipt Date: 20100804
  Transmission Date: 20110219
  Serious: Yes (Other)
  Sender: FDA-Public Use
  Company Number: US-001245

PATIENT
  Sex: Female
  Weight: 86.1834 kg

DRUGS (3)
  1. KUVAN [Suspect]
     Indication: PHENYLKETONURIA
     Dosage: (1300 MG QD ORAL) ; (1800 MG QD ORAL) ; (1800 MG QD ORAL)
     Route: 048
     Dates: start: 20090201, end: 20090701
  2. KUVAN [Suspect]
     Indication: PHENYLKETONURIA
     Dosage: (1300 MG QD ORAL) ; (1800 MG QD ORAL) ; (1800 MG QD ORAL)
     Route: 048
     Dates: start: 20100601, end: 20100601
  3. KUVAN [Suspect]
     Indication: PHENYLKETONURIA
     Dosage: (1300 MG QD ORAL) ; (1800 MG QD ORAL) ; (1800 MG QD ORAL)
     Route: 048
     Dates: start: 20100601

REACTIONS (6)
  - CEREBRAL CALCIFICATION [None]
  - DIZZINESS [None]
  - FEELING ABNORMAL [None]
  - MIGRAINE [None]
  - PAIN IN EXTREMITY [None]
  - SENSATION OF HEAVINESS [None]
